FAERS Safety Report 19677772 (Version 1)
Quarter: 2021Q3

REPORT INFORMATION
  Report Type: Spontaneous
  Country: CN (occurrence: CN)
  Receive Date: 20210809
  Receipt Date: 20210809
  Transmission Date: 20211014
  Serious: Yes (Other)
  Sender: FDA-Public Use
  Company Number: CN-PFIZER INC-202100977933

PATIENT
  Age: 15 Year
  Sex: Female
  Weight: 41.5 kg

DRUGS (2)
  1. SERTRALINE HCL [Suspect]
     Active Substance: SERTRALINE HYDROCHLORIDE
     Indication: DEPRESSION
     Dosage: 1 DF, 1X/DAY
     Route: 048
     Dates: start: 20210710, end: 20210729
  2. OLANZAPINE. [Suspect]
     Active Substance: OLANZAPINE
     Indication: THERAPEUTIC PROCEDURE
     Dosage: 1 DF, 1X/DAY
     Route: 048
     Dates: start: 20210721, end: 20210725

REACTIONS (1)
  - Urinary retention [Recovered/Resolved]

NARRATIVE: CASE EVENT DATE: 20210725
